FAERS Safety Report 15100338 (Version 3)
Quarter: 2018Q3

REPORT INFORMATION
  Report Type: Report from Study
  Country: IT (occurrence: IT)
  Receive Date: 20180703
  Receipt Date: 20180822
  Transmission Date: 20181010
  Serious: Yes (Other)
  Sender: FDA-Public Use
  Company Number: IT-TEVA-2018-IT-918645

PATIENT
  Age: 64 Year
  Sex: Female

DRUGS (2)
  1. NIMOTOP [Suspect]
     Active Substance: NIMODIPINE
     Route: 048
     Dates: start: 20180330, end: 20180404
  2. ROSUVASTATIN. [Suspect]
     Active Substance: ROSUVASTATIN
     Dosage: 1 DOSAGE FORMS DAILY;
     Route: 048
     Dates: start: 20180330, end: 20180404

REACTIONS (3)
  - Localised oedema [Recovering/Resolving]
  - Erythema [Recovering/Resolving]
  - Hypersensitivity [Recovering/Resolving]

NARRATIVE: CASE EVENT DATE: 20180401
